FAERS Safety Report 20528362 (Version 1)
Quarter: 2022Q1

REPORT INFORMATION
  Report Type: Spontaneous
  Country: US (occurrence: None)
  Receive Date: 20220228
  Receipt Date: 20220228
  Transmission Date: 20220423
  Serious: Yes (Hospitalization, Disabling)
  Sender: FDA-Public Use
  Company Number: None

PATIENT
  Sex: Male

DRUGS (1)
  1. TRINTELLIX [Suspect]
     Active Substance: VORTIOXETINE HYDROBROMIDE
     Indication: Depression
     Dates: start: 20220225, end: 20220225

REACTIONS (6)
  - Dizziness [None]
  - Fall [None]
  - Vision blurred [None]
  - Confusional state [None]
  - Paralysis [None]
  - Headache [None]

NARRATIVE: CASE EVENT DATE: 20220225
